FAERS Safety Report 7387769-1 (Version None)
Quarter: 2011Q1

REPORT INFORMATION
  Report Type: 
  Country: None (occurrence: None)
  Receive Date: 20110331
  Receipt Date: 20110303
  Transmission Date: 20110831
  Serious: Yes (Other)
  Sender: FDA-Public Use
  Company Number: US-BAYER-2010-008990

PATIENT
  Sex: Female
  Weight: 92 kg

DRUGS (8)
  1. YAZ [Suspect]
     Indication: ACNE
     Dosage: 1 UNK, UNK
     Route: 048
     Dates: start: 20060501, end: 20060801
  2. DOXEPIN HCL [Concomitant]
     Dosage: 10 MG, UNK
  3. IBUPROFEN [Concomitant]
     Dosage: 200 MG, PRN
  4. YAZ [Suspect]
     Indication: MENORRHAGIA
  5. MULTI-VITAMIN [Concomitant]
     Dosage: UNK UNK, QD
  6. SEASONALE [Concomitant]
  7. UNCODEABLE ^UNCLASSIFIABLE^ [Concomitant]
     Route: 048
  8. IMITREX [Concomitant]
     Dosage: UNK UNK, PRN

REACTIONS (5)
  - INJURY [None]
  - GALLBLADDER DISORDER [None]
  - CHOLECYSTITIS CHRONIC [None]
  - PAIN [None]
  - CHOLELITHIASIS [None]
